FAERS Safety Report 9788065 (Version 1)
Quarter: 2013Q4

REPORT INFORMATION
  Report Type: Spontaneous
  Country: BE (occurrence: BE)
  Receive Date: 20131230
  Receipt Date: 20131230
  Transmission Date: 20140711
  Serious: Yes (Hospitalization)
  Sender: FDA-Public Use
  Company Number: BE-JNJFOC-20131214834

PATIENT
  Age: 40 Year
  Sex: Female

DRUGS (4)
  1. XARELTO [Suspect]
     Indication: DEEP VEIN THROMBOSIS
     Route: 048
  2. XARELTO [Suspect]
     Indication: DEEP VEIN THROMBOSIS
     Route: 048
  3. XARELTO [Suspect]
     Indication: EMBOLISM VENOUS
     Route: 048
  4. XARELTO [Suspect]
     Indication: EMBOLISM VENOUS
     Route: 048

REACTIONS (2)
  - Pulmonary embolism [Recovering/Resolving]
  - Drug ineffective [Unknown]
